FAERS Safety Report 4383678-0 (Version None)
Quarter: 2004Q2

REPORT INFORMATION
  Report Type: 
  Country: None (occurrence: None)
  Receive Date: 20040623
  Receipt Date: 20040614
  Transmission Date: 20050107
  Serious: Yes (Life-Threatening, Hospitalization)
  Sender: FDA-Public Use
  Company Number: FR-GLAXOSMITHKLINE-B0335991A

PATIENT
  Age: 60 Year
  Sex: Male

DRUGS (6)
  1. EPIVIR [Suspect]
     Indication: HIV INFECTION
     Dosage: 150MG TWICE PER DAY
     Route: 048
  2. TAXOTERE [Suspect]
     Route: 042
     Dates: start: 20040219
  3. KALETRA [Suspect]
     Indication: HIV INFECTION
     Dosage: 3UNIT TWICE PER DAY
     Route: 048
  4. VIREAD [Suspect]
     Indication: HIV INFECTION
     Dosage: 245MG PER DAY
     Route: 048
  5. CARBOPLATINE [Suspect]
     Route: 042
     Dates: start: 20040219
  6. TAXOL [Concomitant]
     Route: 042

REACTIONS (13)
  - ATROPHY OF TONGUE PAPILLAE [None]
  - DERMATITIS EXFOLIATIVE [None]
  - DYSPHAGIA [None]
  - EXANTHEM [None]
  - INFLAMMATION [None]
  - MUCOUS MEMBRANE DISORDER [None]
  - NAIL DISORDER [None]
  - NASOPHARYNGEAL DISORDER [None]
  - NEUROPATHY PERIPHERAL [None]
  - PRURITUS [None]
  - SKIN DESQUAMATION [None]
  - SKIN DISORDER [None]
  - TOXIC SKIN ERUPTION [None]
